FAERS Safety Report 11510111 (Version 1)
Quarter: 2015Q3

REPORT INFORMATION
  Report Type: Spontaneous
  Country: US (occurrence: US)
  Receive Date: 20150915
  Receipt Date: 20150915
  Transmission Date: 20151125
  Serious: No
  Sender: FDA-Public Use
  Company Number: US-JNJFOC-20150610979

PATIENT
  Age: 5 Year
  Sex: Male

DRUGS (1)
  1. TYLENOL CHILDRENS SUSPENSION [Suspect]
     Active Substance: ACETAMINOPHEN
     Indication: PRODUCT USED FOR UNKNOWN INDICATION
     Dosage: 1.5 TABLESPOONS 1 TIME
     Route: 048
     Dates: start: 20150612, end: 20150612

REACTIONS (1)
  - Extra dose administered [Unknown]
